FAERS Safety Report 16295954 (Version 1)
Quarter: 2019Q2

REPORT INFORMATION
  Report Type: Spontaneous
  Country: US (occurrence: US)
  Receive Date: 20190510
  Receipt Date: 20190510
  Transmission Date: 20190711
  Serious: No
  Sender: FDA-Public Use
  Company Number: US-BAUSCH-BL-2018-017785

PATIENT
  Sex: Male

DRUGS (1)
  1. LATANOPROST. [Suspect]
     Active Substance: LATANOPROST
     Indication: PRODUCT USED FOR UNKNOWN INDICATION
     Dosage: FOR A LONG TIME
     Route: 047

REACTIONS (3)
  - Eye pain [Unknown]
  - Product quality issue [Unknown]
  - Eye irritation [Unknown]
